FAERS Safety Report 8383965-5 (Version None)
Quarter: 2012Q1

REPORT INFORMATION
  Report Type: 
  Country: None (occurrence: None)
  Receive Date: 20120323
  Receipt Date: 20110427
  Transmission Date: 20120608
  Serious: Yes (Other)
  Sender: FDA-Public Use
  Company Number: 163-21880-11030795

PATIENT
  Age: 73 Year
  Sex: Male

DRUGS (7)
  1. ASPIRIN [Concomitant]
  2. DECADRON [Concomitant]
  3. REVLIMID [Suspect]
     Indication: MULTIPLE MYELOMA
     Dosage: 10 MG, 1 IN 1 D, PO, 25 MG, 1 IN 1 D, PO, 10 MG, X 7D, PO, 20 MG, X 14D, PO
     Route: 048
     Dates: start: 20080701, end: 20080101
  4. REVLIMID [Suspect]
     Indication: MULTIPLE MYELOMA
     Dosage: 10 MG, 1 IN 1 D, PO, 25 MG, 1 IN 1 D, PO, 10 MG, X 7D, PO, 20 MG, X 14D, PO
     Route: 048
     Dates: start: 20080812
  5. ACYCLOVIR [Concomitant]
  6. BACTRIM DS [Concomitant]
  7. DIFLUCAN [Concomitant]

REACTIONS (1)
  - DEEP VEIN THROMBOSIS [None]
